FAERS Safety Report 7331644-5 (Version None)
Quarter: 2011Q1

REPORT INFORMATION
  Report Type: 
  Country: None (occurrence: None)
  Receive Date: 20110304
  Receipt Date: 20110223
  Transmission Date: 20110831
  Serious: Yes (Other)
  Sender: FDA-Public Use
  Company Number: LB-NOVOPROD-322771

PATIENT
  Age: 74 Year
  Sex: Male
  Weight: 94 kg

DRUGS (7)
  1. VICTOZA [Suspect]
     Dosage: 1.8 MG, QD
  2. VICTOZA [Suspect]
     Dosage: 1.2 MG, QD
  3. LERCADIP                           /01366401/ [Concomitant]
     Indication: HYPERTENSION
     Dosage: 20 MG, QD
     Route: 048
     Dates: start: 20090801
  4. VICTOZA [Suspect]
     Indication: BLOOD GLUCOSE INCREASED
     Dosage: 0.6 MG, QD
     Dates: start: 20101220
  5. XENICAL [Concomitant]
     Indication: OBESITY
     Dosage: UNK
     Dates: start: 20060101
  6. COAPROVEL [Concomitant]
     Indication: HYPERTENSION
     Dosage: 300/2.5 MG, QD
     Route: 048
     Dates: start: 20041201
  7. LANTUS [Concomitant]
     Indication: DIABETES MELLITUS
     Dosage: 50 U, QD
     Dates: start: 20090101

REACTIONS (1)
  - BLOOD PRESSURE INCREASED [None]
